FAERS Safety Report 4865039-0 (Version None)
Quarter: 2005Q4

REPORT INFORMATION
  Report Type: 
  Country: None (occurrence: None)
  Receive Date: 20051219
  Receipt Date: 20051209
  Transmission Date: 20060501
  Serious: Yes (Other)
  Sender: FDA-Public Use
  Company Number: 2005JP002264

PATIENT
  Age: 12 Year
  Sex: Female
  Weight: 54.1 kg

DRUGS (3)
  1. PROGRAF [Suspect]
     Indication: BONE MARROW TRANSPLANT
     Dosage: 0.02 MG/KG, UID/QD, IV DIRP
     Route: 041
     Dates: start: 20040602, end: 20040814
  2. PLATELETS, HUMAN BLOOD (PLATELETS, HUMAN BLOOD) INJECTION [Suspect]
     Dosage: IV NOS
     Route: 042
     Dates: start: 20040101
  3. METHYLPREDNISONE (METHYLPREDNISONE) FORMULATION UKNOWN [Suspect]

REACTIONS (16)
  - CYTOMEGALOVIRUS INFECTION [None]
  - DIARRHOEA [None]
  - DRUG INEFFECTIVE [None]
  - DRUG TOXICITY [None]
  - ERYTHEMA [None]
  - GRAFT VERSUS HOST DISEASE [None]
  - HYPERGLYCAEMIA [None]
  - HYPERTENSION [None]
  - MICROANGIOPATHY [None]
  - PLATELET COUNT DECREASED [None]
  - PULMONARY OEDEMA [None]
  - RALES [None]
  - STAPHYLOCOCCAL SEPSIS [None]
  - SUBDURAL HAEMATOMA [None]
  - TRANSFUSION-RELATED ACUTE LUNG INJURY [None]
  - WHITE BLOOD CELL COUNT DECREASED [None]
